FAERS Safety Report 19076126 (Version 2)
Quarter: 2021Q2

REPORT INFORMATION
  Report Type: Spontaneous
  Country: JP (occurrence: JP)
  Receive Date: 20210330
  Receipt Date: 20210405
  Transmission Date: 20210717
  Serious: Yes (Hospitalization, Other)
  Sender: FDA-Public Use
  Company Number: JP-BRISTOL-MYERS SQUIBB COMPANY-BMS-2020-105394

PATIENT
  Age: 48 Year
  Sex: Female
  Weight: 46.3 kg

DRUGS (8)
  1. METHYCOBAL [Concomitant]
     Active Substance: METHYLCOBALAMIN
     Indication: NEUROPATHY PERIPHERAL
     Dosage: 500 MICROGRAM, Q8H
     Route: 048
     Dates: start: 20190403
  2. YERVOY [Suspect]
     Active Substance: IPILIMUMAB
     Indication: MALIGNANT MELANOMA
     Dosage: 126 MILLIGRAM
     Route: 041
     Dates: start: 20190528
  3. FERROUS CITRATE NA [Concomitant]
     Active Substance: SODIUM FERROUS CITRATE
     Indication: IRON DEFICIENCY ANAEMIA
     Dosage: 50 MILLIGRAM
     Route: 048
     Dates: start: 20190403
  4. OPDIVO [Suspect]
     Active Substance: NIVOLUMAB
     Indication: MALIGNANT MELANOMA
     Dosage: 80 MILLIGRAM
     Route: 041
     Dates: start: 20190528
  5. ETIZOLAM [Concomitant]
     Active Substance: ETIZOLAM
     Indication: ANXIETY DISORDER
     Dosage: 1 MILLIGRAM
     Route: 048
     Dates: start: 20190521
  6. DAIKENCHUTO [Concomitant]
     Active Substance: HERBALS
     Indication: CONSTIPATION
     Dosage: 5 GRAM, Q8H
     Route: 048
     Dates: start: 20190407
  7. LOXOPROFEN [Concomitant]
     Active Substance: LOXOPROFEN
     Indication: MALIGNANT MELANOMA
     Dosage: 60 MILLIGRAM, Q8H
     Route: 048
     Dates: start: 20110917
  8. OPDIVO [Suspect]
     Active Substance: NIVOLUMAB
     Dosage: 240 MILLIGRAM
     Route: 041
     Dates: start: 20191001

REACTIONS (7)
  - Secondary adrenocortical insufficiency [Unknown]
  - Hypophysitis [Not Recovered/Not Resolved]
  - Uveitis [Recovering/Resolving]
  - Intentional underdose [Unknown]
  - Hepatic function abnormal [Recovered/Resolved]
  - Diarrhoea [Recovering/Resolving]
  - Autoimmune thyroiditis [Unknown]

NARRATIVE: CASE EVENT DATE: 20190607
